FAERS Safety Report 7022819-3 (Version None)
Quarter: 2010Q3

REPORT INFORMATION
  Report Type: 
  Country: None (occurrence: None)
  Receive Date: 20100930
  Receipt Date: 20100921
  Transmission Date: 20110219
  Serious: Yes (Hospitalization)
  Sender: FDA-Public Use
  Company Number: B0580519A

PATIENT
  Sex: Male
  Weight: 76 kg

DRUGS (9)
  1. VALTREX [Suspect]
     Indication: HERPES ZOSTER
     Dosage: 1000MG THREE TIMES PER DAY
     Route: 048
     Dates: start: 20090615, end: 20090619
  2. URINORM [Concomitant]
     Indication: BLOOD URIC ACID INCREASED
     Dosage: 50MG PER DAY
     Route: 048
  3. FUROSEMIDE [Concomitant]
     Dosage: 20MG PER DAY
     Route: 048
  4. MICARDIS [Concomitant]
     Indication: HYPERTENSION
     Dosage: 40MG PER DAY
     Route: 048
  5. NIVADIL [Concomitant]
     Indication: HYPERTENSION
     Dosage: 8MG TWICE PER DAY
     Route: 048
  6. ALESION [Concomitant]
     Indication: PRODUCT USED FOR UNKNOWN INDICATION
     Dosage: 20MG PER DAY
     Route: 048
  7. ARASENA-A [Concomitant]
     Indication: PRODUCT USED FOR UNKNOWN INDICATION
     Route: 061
  8. MOMETASONE FUROATE [Concomitant]
     Indication: PRODUCT USED FOR UNKNOWN INDICATION
     Route: 061
  9. HIRUDOID [Concomitant]
     Indication: PRODUCT USED FOR UNKNOWN INDICATION
     Route: 061

REACTIONS (7)
  - ALTERED STATE OF CONSCIOUSNESS [None]
  - DYSARTHRIA [None]
  - GAIT DISTURBANCE [None]
  - LOGORRHOEA [None]
  - RENAL FAILURE ACUTE [None]
  - RESTLESSNESS [None]
  - TOXIC ENCEPHALOPATHY [None]
